FAERS Safety Report 7263720-X (Version None)
Quarter: 2011Q1

REPORT INFORMATION
  Report Type: 
  Country: None (occurrence: None)
  Receive Date: 20110130
  Receipt Date: 20101028
  Transmission Date: 20110831
  Serious: No
  Sender: FDA-Public Use
  Company Number: US-ABBOTT-10P-163-0682336-00

PATIENT
  Sex: Female
  Weight: 83.99 kg

DRUGS (7)
  1. LEVOTHYROXINE SODIUM [Concomitant]
     Indication: THYROIDECTOMY
  2. SIMVASTATIN [Concomitant]
     Indication: BLOOD CHOLESTEROL INCREASED
  3. ATENOLOL [Concomitant]
     Indication: HYPERTENSION
  4. HUMIRA [Suspect]
     Indication: RHEUMATOID ARTHRITIS
  5. METHOTREXATE [Concomitant]
     Indication: RHEUMATOID ARTHRITIS
  6. DARVOCET-N 100 [Concomitant]
     Indication: PAIN
  7. ALENDRONATE SODIUM [Concomitant]
     Indication: BONE DEVELOPMENT ABNORMAL

REACTIONS (6)
  - FATIGUE [None]
  - FACIAL PAIN [None]
  - ARTHRALGIA [None]
  - PAIN [None]
  - NASAL CONGESTION [None]
  - MUSCULOSKELETAL PAIN [None]
